FAERS Safety Report 9788532 (Version 1)
Quarter: 2013Q4

REPORT INFORMATION
  Report Type: Spontaneous
  Country: US (occurrence: US)
  Receive Date: 20131230
  Receipt Date: 20131230
  Transmission Date: 20140711
  Serious: No
  Sender: FDA-Public Use
  Company Number: US-B.I. PHARMACEUTICALS,INC./RIDGEFIELD-2013-BI-42765BP

PATIENT
  Age: 74 Year
  Sex: Male

DRUGS (3)
  1. TRADJENTA [Suspect]
     Indication: BLOOD GLUCOSE ABNORMAL
     Dosage: 5 MG
     Route: 048
     Dates: start: 201311, end: 20131214
  2. TRADJENTA [Suspect]
     Dosage: 5 MG
     Route: 048
     Dates: start: 201311, end: 201311
  3. TRADJENTA [Suspect]
     Dosage: 10 MG
     Route: 048
     Dates: start: 201311, end: 201311

REACTIONS (4)
  - Blood glucose increased [Not Recovered/Not Resolved]
  - Pruritus generalised [Not Recovered/Not Resolved]
  - Rhinorrhoea [Recovered/Resolved]
  - Medication error [Recovered/Resolved]
